FAERS Safety Report 17956619 (Version 1)
Quarter: 2020Q2

REPORT INFORMATION
  Report Type: Spontaneous
  Country: US (occurrence: US)
  Receive Date: 20200627
  Receipt Date: 20200627
  Transmission Date: 20200714
  Serious: Yes (Hospitalization)
  Sender: FDA-Public Use
  Company Number: None

PATIENT
  Age: 71 Year
  Sex: Female
  Weight: 50.85 kg

DRUGS (3)
  1. D [Concomitant]
  2. SCENT THEORY - KEEP IT CLEAN - PURE CLEAN ANTI-BACTERIAL HAND SANITIZER [Suspect]
     Active Substance: ALCOHOL
     Indication: CORONAVIRUS INFECTION
     Dosage: ?          OTHER FREQUENCY:AS NEEDED;?
     Route: 061
     Dates: start: 20200615, end: 20200615
  3. METFORMIN [Concomitant]
     Active Substance: METFORMIN HYDROCHLORIDE

REACTIONS (3)
  - Eye irritation [None]
  - Diplopia [None]
  - Nasal discomfort [None]

NARRATIVE: CASE EVENT DATE: 20200615
